FAERS Safety Report 4725026-X (Version None)
Quarter: 2005Q3

REPORT INFORMATION
  Report Type: 
  Country: None (occurrence: None)
  Receive Date: 20050726
  Receipt Date: 20050511
  Transmission Date: 20060218
  Serious: Yes (Other)
  Sender: FDA-Public Use
  Company Number: JP-BRISTOL-MYERS SQUIBB COMPANY-12965059

PATIENT
  Sex: Male

DRUGS (4)
  1. TAXOL [Suspect]
     Indication: GASTRIC CANCER
     Route: 041
     Dates: start: 20050506, end: 20050520
  2. RESTAMIN [Concomitant]
     Route: 048
     Dates: start: 20050506, end: 20050520
  3. GASTER [Concomitant]
     Route: 042
     Dates: start: 20050506, end: 20050520
  4. DECADRON [Concomitant]
     Dosage: 8 MILLIGRAMS X1/1 DAY 06-MAY-2005 TO 06-MAY-2005 AND 20MG X1/1 DAY 19-MAY-2005 TO 20-MAY-2005
     Route: 042
     Dates: start: 20050506, end: 20050520

REACTIONS (3)
  - ACUTE RESPIRATORY DISTRESS SYNDROME [None]
  - DYSPNOEA [None]
  - HYPOTENSION [None]
